FAERS Safety Report 5969659-1 (Version None)
Quarter: 2008Q4

REPORT INFORMATION
  Report Type: 
  Country: None (occurrence: None)
  Receive Date: 20081126
  Receipt Date: 20080918
  Transmission Date: 20090506
  Serious: No
  Sender: FDA-Public Use
  Company Number: US-ABBOTT-08P-163-0476856-00

PATIENT
  Sex: Male
  Weight: 63.56 kg

DRUGS (5)
  1. SIMCOR [Suspect]
     Indication: ARTERIAL DISORDER
     Dosage: 500/20MG
     Route: 048
     Dates: start: 20080701, end: 20080701
  2. SIMCOR [Suspect]
     Dosage: 500/20MG
     Route: 048
     Dates: start: 20080801, end: 20080801
  3. SIMCOR [Suspect]
     Dosage: 500/20MG
     Route: 048
     Dates: start: 20080907
  4. FISH OIL [Concomitant]
     Indication: DRUG USE FOR UNKNOWN INDICATION
     Route: 048
  5. NICOTINIC ACID [Concomitant]
     Indication: ARTERIAL DISORDER
     Route: 048

REACTIONS (2)
  - CONSTIPATION [None]
  - WHITE BLOOD CELL COUNT INCREASED [None]
